FAERS Safety Report 19755231 (Version 1)
Quarter: 2021Q3

REPORT INFORMATION
  Report Type: Spontaneous
  Country: US (occurrence: US)
  Receive Date: 20210827
  Receipt Date: 20210827
  Transmission Date: 20211014
  Serious: Yes (Disabling)
  Sender: FDA-Public Use
  Company Number: None

PATIENT
  Age: 73 Year
  Sex: Female
  Weight: 82.35 kg

DRUGS (3)
  1. DOFETILIDE 500MCG MAYNE [Suspect]
     Active Substance: DOFETILIDE
     Indication: ATRIAL FIBRILLATION
     Dosage: ?          QUANTITY:1 CAPSULE(S);?
     Route: 048
     Dates: start: 20210823
  2. MULTI VITAMIN [Concomitant]
     Active Substance: VITAMINS
  3. SERVO VITAL [Concomitant]

REACTIONS (5)
  - Sneezing [None]
  - Nasopharyngitis [None]
  - Oropharyngeal pain [None]
  - Cough [None]
  - Rhinorrhoea [None]

NARRATIVE: CASE EVENT DATE: 20210825
